FAERS Safety Report 6273364-4 (Version None)
Quarter: 2009Q3

REPORT INFORMATION
  Report Type: 
  Country: None (occurrence: None)
  Receive Date: 20090720
  Receipt Date: 20090714
  Transmission Date: 20100115
  Serious: Yes (Hospitalization, Other)
  Sender: FDA-Public Use
  Company Number: ES-BAYER-200925678GPV

PATIENT
  Age: 74 Year
  Sex: Male

DRUGS (9)
  1. CIPROFLOXACIN [Suspect]
     Indication: DRUG USE FOR UNKNOWN INDICATION
     Dosage: TOTAL DAILY DOSE: 1000 MG
     Route: 048
  2. FLUOXETINE HCL [Interacting]
     Indication: DEPRESSION
     Dosage: 20 MG/DAY
     Route: 048
  3. CITALOPRAM HYDROBROMIDE [Interacting]
     Indication: DEPRESSION
     Dosage: 20 MG/DAY
     Route: 048
  4. REBOXETINE [Interacting]
     Indication: DEPRESSION
     Dosage: 4 MG/DAY
     Route: 048
  5. ACETYLSALICYLIC ACID [Concomitant]
     Indication: CEREBROVASCULAR ACCIDENT PROPHYLAXIS
     Route: 065
  6. ENALAPRIL MALEATE [Concomitant]
     Indication: HYPERTENSION
     Route: 065
  7. SULPIRIDE [Concomitant]
     Indication: DEPRESSION
     Dosage: 50MG/DAY
     Route: 048
  8. DIAZEPAM [Concomitant]
     Indication: DRUG USE FOR UNKNOWN INDICATION
     Dosage: 5 MG/DAY
     Route: 048
  9. OXYBUTYNIN CHLORIDE [Concomitant]
     Indication: BENIGN PROSTATIC HYPERPLASIA
     Dosage: TOTAL DAILY DOSE: 15 MG
     Route: 048

REACTIONS (11)
  - ABASIA [None]
  - CHILLS [None]
  - CONFUSIONAL STATE [None]
  - DYSARTHRIA [None]
  - HYPERHIDROSIS [None]
  - MUSCLE RIGIDITY [None]
  - MYDRIASIS [None]
  - RESTLESSNESS [None]
  - SEROTONIN SYNDROME [None]
  - TACHYCARDIA [None]
  - TREMOR [None]
